FAERS Safety Report 22165548 (Version 1)
Quarter: 2023Q1

REPORT INFORMATION
  Report Type: Spontaneous
  Country: US (occurrence: None)
  Receive Date: 20230331
  Receipt Date: 20230331
  Transmission Date: 20230418
  Serious: Yes (Death)
  Sender: FDA-Public Use
  Company Number: None

PATIENT
  Age: 71 Year
  Sex: Female

DRUGS (1)
  1. AIMOVIG [Suspect]
     Active Substance: ERENUMAB-AOOE
     Indication: Migraine
     Dosage: OTHER FREQUENCY : 30 DAYS;?
     Route: 058
     Dates: start: 20191128, end: 20230302

REACTIONS (1)
  - Death [None]

NARRATIVE: CASE EVENT DATE: 20230330
